FAERS Safety Report 8061003-1 (Version None)
Quarter: 2012Q1

REPORT INFORMATION
  Report Type: 
  Country: None (occurrence: None)
  Receive Date: 20120120
  Receipt Date: 20120111
  Transmission Date: 20120608
  Serious: Yes (Other)
  Sender: FDA-Public Use
  Company Number: DE-ASTRAZENECA-2012SE02068

PATIENT
  Age: 21 Year
  Sex: Male

DRUGS (2)
  1. SEROQUEL XR [Suspect]
     Route: 048
     Dates: start: 20100701
  2. SEROQUEL XR [Suspect]
     Indication: PSYCHOTIC DISORDER
     Route: 048
     Dates: start: 20100101, end: 20100701

REACTIONS (6)
  - DIZZINESS [None]
  - LEUKOPENIA [None]
  - NEUTROPENIA [None]
  - PANIC ATTACK [None]
  - PALPITATIONS [None]
  - TACHYCARDIA [None]
